FAERS Safety Report 6714748-7 (Version None)
Quarter: 2010Q2

REPORT INFORMATION
  Report Type: 
  Country: None (occurrence: None)
  Receive Date: 20100507
  Receipt Date: 20100428
  Transmission Date: 20101027
  Serious: No
  Sender: FDA-Public Use
  Company Number: US-BIOGENIDEC-2010BI014666

PATIENT
  Sex: Female

DRUGS (1)
  1. TYSABRI [Suspect]
     Indication: MULTIPLE SCLEROSIS
     Route: 042
     Dates: start: 20061001

REACTIONS (8)
  - AMNESIA [None]
  - ANXIETY [None]
  - BACK DISORDER [None]
  - BALANCE DISORDER [None]
  - FALL [None]
  - FATIGUE [None]
  - SLEEP DISORDER [None]
  - VISION BLURRED [None]
